FAERS Safety Report 16655243 (Version 2)
Quarter: 2020Q4

REPORT INFORMATION
  Report Type: Other
  Country: US (occurrence: US)
  Receive Date: 20190801
  Receipt Date: 20201001
  Transmission Date: 20210113
  Serious: Yes (Other)
  Sender: FDA-Public Use
  Company Number: US-ROCHE-2368289

PATIENT
  Age: 50 Year
  Sex: Female
  Weight: 68.1 kg

DRUGS (6)
  1. OCREVUS [Suspect]
     Active Substance: OCRELIZUMAB
     Indication: MULTIPLE SCLEROSIS
     Dosage: MOST RECENT THERAPY GIVEN ON 26/APR/2019, 13/SEP/2019, 11/OCT/2019, 15/OCT/2019, 13/APR/2020
     Route: 042
     Dates: start: 20190412
  2. OCREVUS [Suspect]
     Active Substance: OCRELIZUMAB
     Indication: RELAPSING MULTIPLE SCLEROSIS
  3. MODAFINIL. [Concomitant]
     Active Substance: MODAFINIL
  4. DEXILANT [Concomitant]
     Active Substance: DEXLANSOPRAZOLE
     Indication: GASTROOESOPHAGEAL REFLUX DISEASE
     Route: 048
     Dates: start: 2018
  5. EMGALITY [Concomitant]
     Active Substance: GALCANEZUMAB-GNLM
     Indication: MIGRAINE
     Dosage: INJECTION IN THE SIDE OF LEG
     Dates: start: 201901
  6. RANITIDINE. [Concomitant]
     Active Substance: RANITIDINE
     Indication: GASTROOESOPHAGEAL REFLUX DISEASE
     Route: 048
     Dates: start: 2019

REACTIONS (9)
  - Insomnia [Recovered/Resolved]
  - Fatigue [Not Recovered/Not Resolved]
  - Headache [Not Recovered/Not Resolved]
  - Intentional product use issue [Unknown]
  - Gastrooesophageal reflux disease [Not Recovered/Not Resolved]
  - Pain [Recovered/Resolved]
  - Nerve compression [Not Recovered/Not Resolved]
  - Multiple sclerosis [Unknown]
  - Off label use [Unknown]

NARRATIVE: CASE EVENT DATE: 202004
